FAERS Safety Report 15155060 (Version 1)
Quarter: 2018Q3

REPORT INFORMATION
  Report Type: Spontaneous
  Country: US (occurrence: US)
  Receive Date: 20180620
  Receipt Date: 20180620
  Transmission Date: 20181010
  Serious: Yes (Other)
  Sender: FDA-Public Use
  Company Number: None

PATIENT
  Age: 30 Year
  Sex: Female
  Weight: 62.55 kg

DRUGS (7)
  1. BIRTH CONTROL [Concomitant]
     Active Substance: UNSPECIFIED INGREDIENT
  2. CIPROFLOXACIN HCL 500 MG [Suspect]
     Active Substance: CIPROFLOXACIN HYDROCHLORIDE
     Indication: GASTROINTESTINAL INFECTION
     Dosage: ?          QUANTITY:1 TABLET(S);?
     Route: 048
  3. MAGNESIUM [Concomitant]
     Active Substance: MAGNESIUM
  4. ECHINACEA [Concomitant]
     Active Substance: ECHINACEA, UNSPECIFIED
  5. GLUCOSAMINE [Concomitant]
     Active Substance: GLUCOSAMINE
  6. WOMEN^S MULTIVITAMIN [Concomitant]
  7. GOLDENSEAL [Concomitant]
     Active Substance: HERBALS\HOMEOPATHICS\GOLDENSEAL

REACTIONS (4)
  - Tendon pain [None]
  - Pain in extremity [None]
  - Paraesthesia [None]
  - Palpitations [None]

NARRATIVE: CASE EVENT DATE: 20180619
